FAERS Safety Report 5682219-5 (Version None)
Quarter: 2008Q1

REPORT INFORMATION
  Report Type: 
  Country: None (occurrence: None)
  Receive Date: 20080327
  Receipt Date: 20080314
  Transmission Date: 20080703
  Serious: Yes (Other)
  Sender: FDA-Public Use
  Company Number: PHRM2008FR01069

PATIENT
  Sex: Male

DRUGS (4)
  1. CERTICAN [Suspect]
     Indication: RENAL TRANSPLANT
     Dosage: 0.75 MG, BID
     Route: 048
     Dates: start: 20080201, end: 20080314
  2. CERTICAN [Suspect]
     Dosage: 0.5 MG, BID
     Route: 048
  3. CERTICAN [Suspect]
     Dosage: 0.25 MG, BID
     Route: 048
     Dates: end: 20080314
  4. NEORAL [Suspect]
     Indication: RENAL TRANSPLANT
     Dosage: {1 MG/KG:DAY
     Route: 048

REACTIONS (7)
  - BRONCHOALVEOLAR LAVAGE [None]
  - COMPUTERISED TOMOGRAM ABNORMAL [None]
  - DYSPNOEA [None]
  - HYPOXIA [None]
  - INTERSTITIAL LUNG DISEASE [None]
  - PULMONARY ALVEOLAR HAEMORRHAGE [None]
  - PYREXIA [None]
